FAERS Safety Report 7089117-3 (Version None)
Quarter: 2010Q4

REPORT INFORMATION
  Report Type: 
  Country: None (occurrence: None)
  Receive Date: 20101108
  Receipt Date: 20101101
  Transmission Date: 20110411
  Serious: Yes (Other)
  Sender: FDA-Public Use
  Company Number: DK-ABBOTT-10P-044-0681454-00

PATIENT
  Sex: Female

DRUGS (2)
  1. HUMIRA [Suspect]
     Indication: PSORIATIC ARTHROPATHY
     Dosage: 3 YEARS
  2. FERTILITY TREATMENT (NOS) [Concomitant]
     Indication: INFERTILITY

REACTIONS (2)
  - ABORTION SPONTANEOUS [None]
  - PSORIASIS [None]
